APPROVED DRUG PRODUCT: HYPAQUE SODIUM 20%
Active Ingredient: DIATRIZOATE SODIUM
Strength: 20%
Dosage Form/Route: SOLUTION;URETERAL
Application: N009561 | Product #002
Applicant: GE HEALTHCARE
Approved: Approved Prior to Jan 1, 1982 | RLD: No | RS: No | Type: DISCN